FAERS Safety Report 9892199 (Version 5)
Quarter: 2014Q3

REPORT INFORMATION
  Report Type: Report from Study
  Country: AU (occurrence: AU)
  Receive Date: 20140212
  Receipt Date: 20140927
  Transmission Date: 20150326
  Serious: Yes (Life-Threatening)
  Sender: FDA-Public Use
  Company Number: PHHY2014AU015831

PATIENT
  Age: 52 Year
  Sex: Male

DRUGS (2)
  1. GILENYA [Suspect]
     Active Substance: FINGOLIMOD HYDROCHLORIDE
     Indication: RELAPSING-REMITTING MULTIPLE SCLEROSIS
     Dosage: 0.5 MG, DAILY
     Dates: start: 20120225, end: 20140201
  2. CHOP [Suspect]
     Active Substance: CYCLOPHOSPHAMIDE\DOXORUBICIN\PREDNISONE\VINCRISTINE
     Indication: DIFFUSE LARGE B-CELL LYMPHOMA STAGE IV
     Dates: start: 20140227

REACTIONS (22)
  - Constipation [Recovered/Resolved]
  - Oropharyngeal pain [Recovering/Resolving]
  - Facial pain [Recovering/Resolving]
  - Coordination abnormal [Unknown]
  - Swelling [Recovering/Resolving]
  - Night sweats [Recovering/Resolving]
  - Optic neuritis [Unknown]
  - Nausea [Recovered/Resolved]
  - Eye pain [Recovering/Resolving]
  - Lymphadenopathy [Recovering/Resolving]
  - Weight decreased [Recovering/Resolving]
  - Lymphopenia [Recovering/Resolving]
  - Malaise [Recovering/Resolving]
  - Lethargy [Recovering/Resolving]
  - Myalgia [Recovering/Resolving]
  - Neuropathy peripheral [Unknown]
  - Palpitations [Recovering/Resolving]
  - Fatigue [Unknown]
  - White blood cell count decreased [Unknown]
  - Diffuse large B-cell lymphoma stage IV [Recovering/Resolving]
  - Serum ferritin increased [Unknown]
  - Vomiting [Recovered/Resolved]

NARRATIVE: CASE EVENT DATE: 20140128
